FAERS Safety Report 7754138-1 (Version None)
Quarter: 2011Q3

REPORT INFORMATION
  Report Type: 
  Country: None (occurrence: None)
  Receive Date: 20110915
  Receipt Date: 20110912
  Transmission Date: 20111222
  Serious: Yes (Hospitalization)
  Sender: FDA-Public Use
  Company Number: US-VERTEX PHARMACEUTICALS INC.-AE-2011-001494

PATIENT
  Sex: Male
  Weight: 111.68 kg

DRUGS (6)
  1. RISPERIDONE [Concomitant]
     Route: 048
  2. ALDACTONE [Concomitant]
     Route: 048
  3. PROZAC [Concomitant]
     Route: 048
  4. RIBAVIRIN [Concomitant]
     Indication: HEPATITIS C
     Route: 048
     Dates: start: 20110714, end: 20110901
  5. PEGINTERFERON [Concomitant]
     Indication: HEPATITIS C
     Route: 058
     Dates: start: 20110714, end: 20110901
  6. INCIVEK [Suspect]
     Indication: HEPATITIS C
     Route: 048
     Dates: start: 20110714, end: 20110901

REACTIONS (3)
  - ABNORMAL BEHAVIOUR [None]
  - SUICIDAL IDEATION [None]
  - DEPRESSION [None]
